FAERS Safety Report 21990016 (Version 1)
Quarter: 2023Q1

REPORT INFORMATION
  Report Type: Spontaneous
  Country: US (occurrence: US)
  Receive Date: 20230214
  Receipt Date: 20230214
  Transmission Date: 20230417
  Serious: No
  Sender: FDA-Public Use
  Company Number: US-PFIZER INC-2021349237

PATIENT

DRUGS (1)
  1. PREMPRO [Suspect]
     Active Substance: ESTROGENS, CONJUGATED\MEDROXYPROGESTERONE ACETATE
     Dosage: 2 DF, WEEKLY (TAKE TWO TABLETS A WEEK)

REACTIONS (2)
  - Off label use [Unknown]
  - Hyperhidrosis [Unknown]
